FAERS Safety Report 5897427-8 (Version None)
Quarter: 2008Q3

REPORT INFORMATION
  Report Type: 
  Country: None (occurrence: None)
  Receive Date: 20080902
  Receipt Date: 20080714
  Transmission Date: 20090109
  Serious: Yes (Other)
  Sender: FDA-Public Use
  Company Number: 174639USA

PATIENT
  Age: 40 Year
  Sex: Male
  Weight: 103.148 kg

DRUGS (3)
  1. AMLODIPINE BESYLATE [Suspect]
     Dosage: 10 MG (10 MG,1 IN 1 D),ORAL ; 20 MG (20 MG,1 IN 1 D),ORAL
     Route: 048
     Dates: start: 20070605, end: 20070605
  2. AMLODIPINE BESYLATE [Suspect]
     Dosage: 10 MG (10 MG,1 IN 1 D),ORAL ; 20 MG (20 MG,1 IN 1 D),ORAL
     Route: 048
     Dates: start: 20070605, end: 20070605
  3. CITALOPRAM HYDROBROMIDE [Concomitant]

REACTIONS (9)
  - BLOOD PRESSURE INCREASED [None]
  - COLD SWEAT [None]
  - DIZZINESS [None]
  - DYSPNOEA [None]
  - ELECTROCARDIOGRAM CHANGE [None]
  - HEART SOUNDS ABNORMAL [None]
  - LETHARGY [None]
  - NAUSEA [None]
  - RASH [None]
